FAERS Safety Report 4543120-3 (Version None)
Quarter: 2004Q4

REPORT INFORMATION
  Report Type: 
  Country: None (occurrence: None)
  Receive Date: 20041229
  Receipt Date: 20041216
  Transmission Date: 20050328
  Serious: Yes (Disabling, Other)
  Sender: FDA-Public Use
  Company Number: GBWYE294720DEC04

PATIENT
  Sex: Female

DRUGS (10)
  1. EFFEXOR [Suspect]
     Dosage: ORAL
     Route: 048
     Dates: start: 20040401, end: 20040101
  2. AMITRIPTYLINE (AMITRIPTYLINE, , 0) [Suspect]
     Dosage: ORAL
     Route: 048
     Dates: start: 20040611
  3. LOPERAMIDE [Suspect]
     Dates: start: 20040301
  4. CITALOPRAM [Concomitant]
  5. FLUOXETINE [Concomitant]
  6. PAROXETINE HCL [Concomitant]
  7. DOTHIEPIN HYDROCHLORIDE [Concomitant]
  8. MIRTAZAPINE [Concomitant]
  9. LOSARTAN (LOSARTAN) [Concomitant]
  10. OMEPRAZOLE [Concomitant]

REACTIONS (3)
  - EYE PRURITUS [None]
  - EYELID OEDEMA [None]
  - INFLAMMATION [None]
